FAERS Safety Report 14968650 (Version 2)
Quarter: 2018Q2

REPORT INFORMATION
  Report Type: Spontaneous
  Country: JP (occurrence: JP)
  Receive Date: 20180604
  Receipt Date: 20180622
  Transmission Date: 20180711
  Serious: Yes (Other)
  Sender: FDA-Public Use
  Company Number: JP-SA-2018SA139150

PATIENT
  Age: 7 Decade
  Sex: Male

DRUGS (1)
  1. JEVTANA [Suspect]
     Active Substance: CABAZITAXEL
     Indication: HORMONE-REFRACTORY PROSTATE CANCER
     Dosage: 38 MG, QD
     Route: 042
     Dates: start: 20170927, end: 20180516

REACTIONS (2)
  - Hydronephrosis [Unknown]
  - Cystitis haemorrhagic [Not Recovered/Not Resolved]
